FAERS Safety Report 10302451 (Version 2)
Quarter: 2014Q3

REPORT INFORMATION
  Report Type: Spontaneous
  Country: IL (occurrence: IL)
  Receive Date: 20140714
  Receipt Date: 20140801
  Transmission Date: 20150326
  Serious: Yes (Hospitalization)
  Sender: FDA-Public Use
  Company Number: IL-ASTRAZENECA-2014SE49974

PATIENT
  Age: 75 Year
  Sex: Male

DRUGS (9)
  1. ATORVASTATIN [Suspect]
     Active Substance: ATORVASTATIN
     Indication: ACUTE MYOCARDIAL INFARCTION
     Route: 065
     Dates: start: 20140601, end: 20140630
  2. VASODIP [Concomitant]
  3. BRILINTA [Suspect]
     Active Substance: TICAGRELOR
     Indication: ACUTE CORONARY SYNDROME
     Route: 048
     Dates: start: 20140601, end: 20140630
  4. OMEPRAZOLE. [Concomitant]
     Active Substance: OMEPRAZOLE
  5. BRILINTA [Suspect]
     Active Substance: TICAGRELOR
     Indication: ACUTE MYOCARDIAL INFARCTION
     Route: 048
     Dates: start: 20140601, end: 20140630
  6. XATRAL [Concomitant]
     Active Substance: ALFUZOSIN
  7. CARTIA XT [Concomitant]
     Active Substance: DILTIAZEM HYDROCHLORIDE
  8. NORMITEN [Concomitant]
     Active Substance: ATENOLOL
  9. ATORVASTATIN [Suspect]
     Active Substance: ATORVASTATIN
     Indication: RHABDOMYOLYSIS
     Route: 065
     Dates: start: 20140601, end: 20140630

REACTIONS (6)
  - Blood creatinine increased [Unknown]
  - Oliguria [Unknown]
  - Hepatomegaly [Unknown]
  - Liver injury [Unknown]
  - Hepatic enzyme increased [Recovered/Resolved with Sequelae]
  - Blood bilirubin increased [Unknown]

NARRATIVE: CASE EVENT DATE: 20140629
